FAERS Safety Report 5587258-0 (Version None)
Quarter: 2008Q1

REPORT INFORMATION
  Report Type: 
  Country: None (occurrence: None)
  Receive Date: 20080110
  Receipt Date: 20080103
  Transmission Date: 20080703
  Serious: Yes (Hospitalization)
  Sender: FDA-Public Use
  Company Number: US-ELI_LILLY_AND_COMPANY-US200801000406

PATIENT
  Sex: Female

DRUGS (4)
  1. BYETTA [Suspect]
     Dosage: 5 UG, 2/D
     Route: 058
     Dates: start: 20070501, end: 20070501
  2. BYETTA [Suspect]
     Dosage: 10 UG, 2/D
     Route: 058
     Dates: start: 20070501
  3. METFORMIN HCL [Concomitant]
     Dates: end: 20071211
  4. METFORMIN HCL [Concomitant]
     Dates: start: 20071218

REACTIONS (4)
  - ABDOMINAL PAIN [None]
  - ANOREXIA [None]
  - FISTULA [None]
  - PYREXIA [None]
